FAERS Safety Report 9415711 (Version 1)
Quarter: 2013Q3

REPORT INFORMATION
  Report Type: Spontaneous
  Country: US (occurrence: US)
  Receive Date: 20130723
  Receipt Date: 20130723
  Transmission Date: 20140515
  Serious: No
  Sender: FDA-Public Use
  Company Number: US-009507513-1307USA007676

PATIENT
  Age: 46 Year
  Sex: Male

DRUGS (2)
  1. EPTIFIBATIDE [Suspect]
     Indication: THROMBOSIS IN DEVICE
     Dosage: UNK
     Route: 042
  2. HEPARIN [Concomitant]
     Indication: THROMBOSIS IN DEVICE
     Dosage: UNK
     Route: 042

REACTIONS (1)
  - Drug ineffective [Unknown]
